FAERS Safety Report 12100904 (Version 3)
Quarter: 2016Q1

REPORT INFORMATION
  Report Type: Spontaneous
  Country: PT (occurrence: PT)
  Receive Date: 20160222
  Receipt Date: 20160322
  Transmission Date: 20160526
  Serious: Yes (Death, Disabling)
  Sender: FDA-Public Use
  Company Number: PT-ASTRAZENECA-2016SE14399

PATIENT
  Age: 2871 Week
  Sex: Female
  Weight: 73 kg

DRUGS (3)
  1. FASLODEX [Suspect]
     Active Substance: FULVESTRANT
     Indication: BREAST CANCER
     Route: 030
     Dates: start: 20150526
  2. FASLODEX [Suspect]
     Active Substance: FULVESTRANT
     Indication: BREAST CANCER
     Route: 030
     Dates: start: 20150626, end: 20150714
  3. ZOLEDRONIC ACID [Concomitant]
     Active Substance: ZOLEDRONIC ACID
     Indication: METASTASES TO BONE
     Route: 042
     Dates: start: 2012, end: 201510

REACTIONS (3)
  - Malignant neoplasm progression [Fatal]
  - Pneumonitis [Fatal]
  - Affect lability [Recovered/Resolved]

NARRATIVE: CASE EVENT DATE: 20150623
